FAERS Safety Report 4387709-3 (Version None)
Quarter: 2004Q2

REPORT INFORMATION
  Report Type: 
  Country: None (occurrence: None)
  Receive Date: 20040625
  Receipt Date: 20040611
  Transmission Date: 20050107
  Serious: Yes (Other)
  Sender: FDA-Public Use
  Company Number: SUSI-2004-00357

PATIENT
  Age: 65 Year
  Sex: Female
  Weight: 80.3 kg

DRUGS (7)
  1. PENTASA [Suspect]
     Indication: CROHN'S DISEASE
     Dosage: 2 G DAILY
     Dates: start: 20000101
  2. PRILLOSEC (OMEPRAZOLE) [Concomitant]
  3. VALSARTAN (VALSARTAN) [Concomitant]
  4. PAXIL [Concomitant]
  5. LIPITOR [Concomitant]
  6. ACETYLSALICYLIC ACID SRT [Concomitant]
  7. CELEBREX [Concomitant]

REACTIONS (1)
  - EOSINOPHILS URINE [None]
